FAERS Safety Report 11643940 (Version 1)
Quarter: 2015Q4

REPORT INFORMATION
  Report Type: Spontaneous
  Country: US (occurrence: None)
  Receive Date: 20151019
  Receipt Date: 20151019
  Transmission Date: 20160304
  Serious: Yes (Disabling)
  Sender: FDA-Public Use
  Company Number: None

PATIENT
  Age: 69 Year
  Sex: Female
  Weight: 90.72 kg

DRUGS (17)
  1. MELATONIN [Concomitant]
     Active Substance: MELATONIN
  2. D3 [Concomitant]
     Active Substance: 25-HYDROXYCHOLECALCIFEROL, 5-TRANS-
  3. VITAMIN C [Concomitant]
     Active Substance: ASCORBIC ACID
  4. PROZAC [Concomitant]
     Active Substance: FLUOXETINE HYDROCHLORIDE
  5. ATENOLOL. [Concomitant]
     Active Substance: ATENOLOL
  6. B12 SHOTS [Concomitant]
     Active Substance: CYANOCOBALAMIN
  7. CIPROFLOXACIN HCL [Suspect]
     Active Substance: CIPROFLOXACIN HYDROCHLORIDE
     Indication: URINARY TRACT INFECTION
     Dosage: 1 PILL TWICE DAILY
     Route: 048
  8. ZOCOR [Concomitant]
     Active Substance: SIMVASTATIN
  9. OMEPRAZOLE. [Concomitant]
     Active Substance: OMEPRAZOLE
  10. TYLENOL [Concomitant]
     Active Substance: ACETAMINOPHEN
  11. TRIAMTERENE. [Concomitant]
     Active Substance: TRIAMTERENE
  12. LOSARTAN. [Concomitant]
     Active Substance: LOSARTAN
  13. FLOVENT [Concomitant]
     Active Substance: FLUTICASONE PROPIONATE
  14. LYRICA [Concomitant]
     Active Substance: PREGABALIN
  15. BENADRYL [Concomitant]
     Active Substance: DIPHENHYDRAMINE HYDROCHLORIDE
  16. ATROVENT [Concomitant]
     Active Substance: IPRATROPIUM BROMIDE
  17. OMEGA3 [Concomitant]

REACTIONS (8)
  - Tendonitis [None]
  - Myalgia [None]
  - Muscle spasms [None]
  - Tremor [None]
  - Quality of life decreased [None]
  - Muscle swelling [None]
  - Pain [None]
  - Mobility decreased [None]

NARRATIVE: CASE EVENT DATE: 20150820
